FAERS Safety Report 10246082 (Version 1)
Quarter: 2014Q2

REPORT INFORMATION
  Report Type: Spontaneous
  Country: US (occurrence: US)
  Receive Date: 20140619
  Receipt Date: 20140619
  Transmission Date: 20141212
  Serious: No
  Sender: FDA-Public Use
  Company Number: US-JNJFOC-20140604936

PATIENT
  Sex: Male
  Weight: 86.18 kg

DRUGS (1)
  1. FENTANYL [Suspect]
     Indication: PAIN
     Route: 062

REACTIONS (3)
  - Therapeutic response decreased [Unknown]
  - Expired product administered [Unknown]
  - Drug withdrawal syndrome [Not Recovered/Not Resolved]
